FAERS Safety Report 7532213-4 (Version None)
Quarter: 2011Q2

REPORT INFORMATION
  Report Type: 
  Country: None (occurrence: None)
  Receive Date: 20110608
  Receipt Date: 20110606
  Transmission Date: 20111010
  Serious: Yes (Other)
  Sender: FDA-Public Use
  Company Number: US-PFIZER INC-2011122887

PATIENT
  Sex: Male
  Weight: 81.633 kg

DRUGS (2)
  1. LITHIUM [Concomitant]
     Indication: SCHIZOPHRENIA
     Dosage: 300 MG IN MORNING AND 600 MG IN NIGHT
     Route: 048
  2. GEODON [Suspect]
     Indication: SCHIZOPHRENIA
     Dosage: 20 MG, UNK
     Route: 048
     Dates: start: 20110401

REACTIONS (1)
  - BLOOD BILIRUBIN INCREASED [None]
